FAERS Safety Report 8052915-3 (Version None)
Quarter: 2012Q1

REPORT INFORMATION
  Report Type: 
  Country: None (occurrence: None)
  Receive Date: 20120118
  Receipt Date: 20120111
  Transmission Date: 20120608
  Serious: Yes (Other)
  Sender: FDA-Public Use
  Company Number: BR-PFIZER INC-2012003527

PATIENT
  Age: 32 Year
  Sex: Female
  Weight: 66 kg

DRUGS (3)
  1. VARENICLINE TARTRATE [Suspect]
     Dosage: 1 MG, 2X/DAY,(EVERY 12 HOURS)
     Route: 048
     Dates: start: 20120101
  2. YAZ [Concomitant]
     Indication: CONTRACEPTION
     Dosage: 1 TABLET ONCE DAILY
  3. VARENICLINE TARTRATE [Suspect]
     Indication: SMOKING CESSATION THERAPY
     Dosage: 0.5 MG, 1X/DAY (1 TABLET 0.5 MG, 1X/DAY)
     Route: 048
     Dates: start: 20120104, end: 20120101

REACTIONS (15)
  - FATIGUE [None]
  - ASTHENIA [None]
  - SOMNOLENCE [None]
  - MENTAL IMPAIRMENT [None]
  - DECREASED APPETITE [None]
  - MOOD ALTERED [None]
  - IMPAIRED REASONING [None]
  - DEPRESSED MOOD [None]
  - SLUGGISHNESS [None]
  - NIGHTMARE [None]
  - AGGRESSION [None]
  - DIZZINESS [None]
  - DEPRESSION [None]
  - IRRITABILITY [None]
  - PERIPHERAL COLDNESS [None]
